FAERS Safety Report 8160426-X (Version None)
Quarter: 2012Q1

REPORT INFORMATION
  Report Type: 
  Country: None (occurrence: None)
  Receive Date: 20120223
  Receipt Date: 20120213
  Transmission Date: 20120608
  Serious: No
  Sender: FDA-Public Use
  Company Number: US-B.I. PHARMACEUTICALS,INC./RIDGEFIELD-2012-BP-02767BP

PATIENT
  Sex: Female

DRUGS (5)
  1. ASPIRIN [Concomitant]
  2. METOPROLOL [Concomitant]
  3. AMLODIPINE [Concomitant]
  4. FOLBIC [Concomitant]
     Indication: UTERINE CANCER
  5. PRADAXA [Suspect]
     Indication: ATRIAL FIBRILLATION
     Dosage: 300 MG
     Route: 048
     Dates: start: 20110801

REACTIONS (1)
  - HEART VALVE INCOMPETENCE [None]
